FAERS Safety Report 7230574-7 (Version None)
Quarter: 2011Q1

REPORT INFORMATION
  Report Type: 
  Country: None (occurrence: None)
  Receive Date: 20110118
  Receipt Date: 20110110
  Transmission Date: 20110831
  Serious: Yes (Death, Other)
  Sender: FDA-Public Use
  Company Number: PHHY2011EC02171

PATIENT
  Sex: Male

DRUGS (2)
  1. GLEEVEC [Suspect]
     Dosage: 800 MG, QD
     Route: 048
     Dates: start: 20100701, end: 20110105
  2. GLEEVEC [Suspect]
     Indication: CHRONIC MYELOID LEUKAEMIA
     Dosage: 400 MG, QD
     Route: 048
     Dates: start: 20070928

REACTIONS (4)
  - MALAISE [None]
  - BLAST CRISIS IN MYELOGENOUS LEUKAEMIA [None]
  - CEREBRAL HAEMORRHAGE [None]
  - HEADACHE [None]
